FAERS Safety Report 7561412-0 (Version None)
Quarter: 2011Q2

REPORT INFORMATION
  Report Type: 
  Country: None (occurrence: None)
  Receive Date: 20110621
  Receipt Date: 20100526
  Transmission Date: 20111010
  Serious: No
  Sender: FDA-Public Use
  Company Number: US-ASTRAZENECA-2010SE24450

PATIENT
  Age: 945 Month
  Sex: Female
  Weight: 73.5 kg

DRUGS (2)
  1. PULMICORT FLEXHALER [Suspect]
     Indication: ASTHMA
     Dosage: ONE PUFF TWICE A DAY, TOTAL DAILY DOSAGE OF 120 MCG
     Route: 055
     Dates: start: 20100501
  2. XOPENEX [Concomitant]

REACTIONS (3)
  - DYSPNOEA [None]
  - WRONG TECHNIQUE IN DRUG USAGE PROCESS [None]
  - WHEEZING [None]
